FAERS Safety Report 5215666-6 (Version None)
Quarter: 2007Q1

REPORT INFORMATION
  Report Type: 
  Country: None (occurrence: None)
  Receive Date: 20070117
  Receipt Date: 20070105
  Transmission Date: 20070707
  Serious: Yes (Life-Threatening, Hospitalization, Disabling, Other)
  Sender: FDA-Public Use
  Company Number: 200612AGG00541

PATIENT
  Age: 67 Year
  Sex: Female

DRUGS (5)
  1. AGGRASTAT [Suspect]
     Dosage: 7.5 ML TOTAL DAILY DOSE, INTRAVENOUS
     Route: 042
     Dates: start: 20061028, end: 20061028
  2. ASPIRIN [Concomitant]
  3. CLOPIDOGREL BISULFATE [Concomitant]
  4. ALDACTONE [Concomitant]
  5. MONO-CEDOCARD [Concomitant]

REACTIONS (9)
  - ATRIAL FIBRILLATION [None]
  - CARDIAC FAILURE [None]
  - CEREBROVASCULAR ACCIDENT [None]
  - HAEMORRHAGE [None]
  - HEMIPARESIS [None]
  - RENAL FAILURE [None]
  - RESPIRATORY FAILURE [None]
  - SEPSIS [None]
  - VENTRICULAR TACHYCARDIA [None]
